FAERS Safety Report 4726542-7 (Version None)
Quarter: 2005Q3

REPORT INFORMATION
  Report Type: 
  Country: None (occurrence: None)
  Receive Date: 20050727
  Receipt Date: 20050309
  Transmission Date: 20060218
  Serious: Yes (Hospitalization, Other)
  Sender: FDA-Public Use
  Company Number: US-MERCK-0503USA01685

PATIENT
  Age: 49 Year
  Sex: Male
  Weight: 89 kg

DRUGS (39)
  1. VIOXX [Suspect]
     Indication: ARTHRITIS
     Route: 048
     Dates: start: 20030822, end: 20040901
  2. VIOXX [Suspect]
     Indication: ARTHRALGIA
     Route: 048
     Dates: start: 20030822, end: 20040901
  3. PHOSLO [Concomitant]
     Route: 065
  4. PREDNISONE [Concomitant]
     Route: 048
  5. ALLOPURINOL [Concomitant]
     Route: 048
  6. DOCUSATE SODIUM [Concomitant]
     Route: 065
  7. LIPITOR [Concomitant]
     Route: 065
     Dates: start: 20001018, end: 20031015
  8. NORVASC [Concomitant]
     Route: 065
     Dates: start: 20001110, end: 20040704
  9. AVANDIA [Concomitant]
     Route: 065
  10. LOPRESSOR [Concomitant]
     Route: 065
     Dates: start: 20030701
  11. ZOLOFT [Concomitant]
     Indication: ANXIETY
     Route: 065
     Dates: start: 20030503
  12. FAMVIR [Concomitant]
     Route: 065
  13. COZAAR [Concomitant]
     Route: 048
     Dates: start: 20030722
  14. DIATX [Concomitant]
     Route: 065
  15. DURICEF [Concomitant]
     Route: 065
  16. ACETAMINOPHEN AND HYDROCODONE BITARTRATE [Concomitant]
     Route: 065
  17. NEPHRO-VITE RX [Concomitant]
     Route: 065
  18. TEMAZEPAM [Concomitant]
     Route: 065
  19. AMOXICILLIN AND CLAVULANATE POTASSIUM [Concomitant]
     Route: 065
  20. MINOXIDIL 2% [Concomitant]
     Route: 065
  21. METRONIDAZOLE [Concomitant]
     Route: 065
  22. ENDOCET [Concomitant]
     Route: 065
  23. LABETALOL HYDROCHLORIDE [Concomitant]
     Route: 065
  24. AMITRIPTYLINE HYDROCHLORIDE [Concomitant]
     Route: 048
  25. ACETAMINOPHEN AND PROPOXYPHENE NAPSYLATE [Concomitant]
     Route: 065
  26. NIFEDIPINE [Concomitant]
     Route: 048
  27. ZITHROMAX [Concomitant]
     Route: 065
  28. CLINDAMYCIN [Concomitant]
     Route: 065
  29. TRIAMCINOLONE ACETONIDE [Concomitant]
     Route: 065
  30. LEVAQUIN [Concomitant]
     Route: 065
  31. TYLENOL [Concomitant]
     Route: 065
     Dates: start: 19700101
  32. BEXTRA [Concomitant]
     Route: 065
     Dates: start: 20031224, end: 20040101
  33. CALCITRIOL [Concomitant]
     Route: 065
  34. COLCHICINE [Concomitant]
     Route: 065
  35. CARBIDOPA AND LEVODOPA [Concomitant]
     Route: 048
  36. HEPARIN [Concomitant]
     Route: 065
     Dates: start: 19900101
  37. ASPIRIN [Concomitant]
     Route: 048
     Dates: start: 19590101
  38. PRAVACHOL [Concomitant]
     Route: 065
  39. DIPHENHYDRAMINE HYDROCHLORIDE [Concomitant]
     Route: 065

REACTIONS (20)
  - ACUTE PULMONARY OEDEMA [None]
  - ANXIETY [None]
  - ARTERIOVENOUS FISTULA THROMBOSIS [None]
  - CARDIAC FAILURE CONGESTIVE [None]
  - CLOSTRIDIUM COLITIS [None]
  - CORONARY ARTERY DISEASE [None]
  - DRUG HYPERSENSITIVITY [None]
  - FAECES DISCOLOURED [None]
  - FLUID OVERLOAD [None]
  - GASTROINTESTINAL HAEMORRHAGE [None]
  - GRAFT THROMBOSIS [None]
  - GYNAECOMASTIA [None]
  - HERNIA [None]
  - HYPERTENSIVE CRISIS [None]
  - HYPERTENSIVE EMERGENCY [None]
  - LATEX ALLERGY [None]
  - MEDICAL DEVICE COMPLICATION [None]
  - NON-CARDIAC CHEST PAIN [None]
  - PNEUMONIA [None]
  - PULMONARY INFARCTION [None]
